FAERS Safety Report 7565578-8 (Version None)
Quarter: 2011Q2

REPORT INFORMATION
  Report Type: 
  Country: None (occurrence: None)
  Receive Date: 20110615
  Receipt Date: 20110602
  Transmission Date: 20111010
  Serious: Yes (Hospitalization, Other)
  Sender: FDA-Public Use
  Company Number: 2011AP001113

PATIENT
  Age: 70 Year
  Sex: Male

DRUGS (1)
  1. OMEPRAZOLE [Suspect]
     Indication: PRODUCT USED FOR UNKNOWN INDICATION
     Dosage: 20 MG;QD, 40 MG QD

REACTIONS (6)
  - HYPOCALCAEMIA [None]
  - HAEMODYNAMIC INSTABILITY [None]
  - GIARDIASIS [None]
  - DIARRHOEA [None]
  - HYPOMAGNESAEMIA [None]
  - SUPRAVENTRICULAR TACHYCARDIA [None]
